FAERS Safety Report 9164011 (Version 1)
Quarter: 2012Q4

REPORT INFORMATION
  Report Type: 
  Country: US (occurrence: US)
  Receive Date: 20121130
  Receipt Date: 20121130
  Transmission Date: 20130627
  Serious: Yes (Other)
  Sender: FDA-Public Use
  Company Number: US-RB-047110-12

PATIENT
  Sex: Male

DRUGS (1)
  1. MUCINEX UNKNOWN TYPE [Suspect]
     Indication: PRODUCT USED FOR UNKNOWN INDICATION
     Dosage: Pills
     Route: 048

REACTIONS (2)
  - Drug dependence [Unknown]
  - Aversion [Unknown]
